FAERS Safety Report 24703245 (Version 1)
Quarter: 2024Q4

REPORT INFORMATION
  Report Type: Spontaneous
  Country: US (occurrence: US)
  Receive Date: 20241205
  Receipt Date: 20241205
  Transmission Date: 20250115
  Serious: No
  Sender: MERCK
  Company Number: US-009507513-2411USA001955

PATIENT
  Sex: Female
  Weight: 90 kg

DRUGS (3)
  1. WINREVAIR [Suspect]
     Active Substance: SOTATERCEPT-CSRK
     Indication: Pulmonary arterial hypertension
     Dosage: 0.7 MILLIGRAM/KILOGRAM, Q3W
     Dates: start: 20240625
  2. WINREVAIR [Suspect]
     Active Substance: SOTATERCEPT-CSRK
     Dosage: 0.7 MILLIGRAM/KILOGRAM, Q3W
     Dates: start: 20241022, end: 20241022
  3. WINREVAIR [Suspect]
     Active Substance: SOTATERCEPT-CSRK
     Dosage: 0.7 MILLIGRAM/KILOGRAM, Q3W
     Dates: start: 20241112

REACTIONS (2)
  - Epistaxis [Recovered/Resolved]
  - Inappropriate schedule of product administration [Unknown]

NARRATIVE: CASE EVENT DATE: 20240101
